FAERS Safety Report 19445740 (Version 3)
Quarter: 2021Q3

REPORT INFORMATION
  Report Type: Spontaneous
  Country: CA (occurrence: CA)
  Receive Date: 20210622
  Receipt Date: 20210816
  Transmission Date: 20211014
  Serious: Yes (Hospitalization, Other)
  Sender: FDA-Public Use
  Company Number: CA-GLAXOSMITHKLINE-CA2021AMR131266

PATIENT
  Sex: Female

DRUGS (3)
  1. ZEJULA [Suspect]
     Active Substance: NIRAPARIB
     Indication: FALLOPIAN TUBE CANCER
  2. ZEJULA [Suspect]
     Active Substance: NIRAPARIB
     Indication: OVARIAN EPITHELIAL CANCER
     Dosage: 300 MG, QD
     Route: 048
     Dates: start: 20210518, end: 20210810
  3. ZEJULA [Suspect]
     Active Substance: NIRAPARIB
     Indication: PERITONEAL NEOPLASM

REACTIONS (6)
  - Platelet count decreased [Unknown]
  - Vomiting [Unknown]
  - Adverse reaction [Unknown]
  - Diarrhoea [Unknown]
  - Malignant neoplasm progression [Unknown]
  - Fatigue [Unknown]
